FAERS Safety Report 9075259 (Version 1)
Quarter: 2013Q1

REPORT INFORMATION
  Report Type: Spontaneous
  Country: GB (occurrence: GB)
  Receive Date: 20130128
  Receipt Date: 20130128
  Transmission Date: 20140127
  Serious: Yes (Hospitalization, Other)
  Sender: FDA-Public Use
  Company Number: GB-SPECTRUM PHARMACEUTICALS, INC.-13-F-GB-00021

PATIENT
  Age: 26 Year
  Sex: Male

DRUGS (3)
  1. FLUOROURACIL [Suspect]
     Indication: COLON CANCER
     Dosage: UNK
     Route: 042
  2. LEUCOVORIN                         /00566701/ [Suspect]
     Indication: COLON CANCER
     Dosage: UNK
     Route: 042
  3. OXALIPLATIN [Suspect]
     Indication: COLON CANCER
     Dosage: UNK
     Route: 042

REACTIONS (4)
  - Vena cava thrombosis [Recovered/Resolved]
  - Neutropenia [Unknown]
  - Dyspnoea exertional [Recovered/Resolved]
  - Venous pressure jugular increased [Recovered/Resolved]
